FAERS Safety Report 10922159 (Version 3)
Quarter: 2015Q4

REPORT INFORMATION
  Report Type: Spontaneous
  Country: US (occurrence: US)
  Receive Date: 20150317
  Receipt Date: 20151007
  Transmission Date: 20160304
  Serious: Yes (Death, Other)
  Sender: FDA-Public Use
  Company Number: US-GLAXOSMITHKLINE-US2015GSK015204

PATIENT
  Sex: Female

DRUGS (1)
  1. VOTRIENT [Suspect]
     Active Substance: PAZOPANIB HYDROCHLORIDE
     Indication: RENAL CANCER
     Dosage: 800 MG, QD
     Route: 065
     Dates: start: 20150103

REACTIONS (5)
  - Malignant neoplasm progression [Fatal]
  - Cholecystectomy [Unknown]
  - Arthralgia [Not Recovered/Not Resolved]
  - Impaired healing [Unknown]
  - Metastatic neoplasm [Fatal]
